FAERS Safety Report 8875352 (Version 1)
Quarter: 2012Q4

REPORT INFORMATION
  Report Type: 
  Country: US (occurrence: US)
  Receive Date: 20121026
  Receipt Date: 20121026
  Transmission Date: 20130627
  Serious: No
  Sender: FDA-Public Use
  Company Number: US-AMGEN-USASP2012044318

PATIENT
  Age: 42 Year
  Sex: Female

DRUGS (3)
  1. ENBREL [Suspect]
     Indication: PSORIATIC ARTHROPATHY
     Dosage: 50 mg, qwk
     Dates: start: 20030501
  2. HUMIRA [Concomitant]
     Dosage: UNK
  3. REMICADE [Concomitant]
     Dosage: UNK

REACTIONS (4)
  - Oesophageal spasm [Recovered/Resolved]
  - Blood pressure fluctuation [Recovered/Resolved]
  - Drug effect incomplete [Recovered/Resolved]
  - Injection site pain [Not Recovered/Not Resolved]
